FAERS Safety Report 8052602-1 (Version None)
Quarter: 2012Q1

REPORT INFORMATION
  Report Type: 
  Country: None (occurrence: None)
  Receive Date: 20120117
  Receipt Date: 20120117
  Transmission Date: 20120608
  Serious: Yes (Hospitalization)
  Sender: FDA-Public Use
  Company Number: None

PATIENT
  Age: 59 Year
  Sex: Male
  Weight: 63.6 kg

DRUGS (1)
  1. CHLORTHALIDONE [Suspect]
     Dosage: 12.5 MG EVERY DAY PO
     Route: 047
     Dates: start: 20100629, end: 20110608

REACTIONS (1)
  - RHABDOMYOLYSIS [None]
